FAERS Safety Report 22291220 (Version 1)
Quarter: 2023Q2

REPORT INFORMATION
  Report Type: Report from Study
  Country: US (occurrence: US)
  Receive Date: 20230506
  Receipt Date: 20230506
  Transmission Date: 20230722
  Serious: Yes (Other)
  Sender: FDA-Public Use
  Company Number: US-002147023-NVSC2023US102995

PATIENT
  Sex: Female

DRUGS (10)
  1. OXALIPLATIN [Suspect]
     Active Substance: OXALIPLATIN
     Indication: Ductal adenocarcinoma of pancreas
     Dosage: UNK, Q2W (EVERY 2 WEEKS)
     Route: 065
     Dates: start: 202206, end: 202212
  2. OXALIPLATIN [Suspect]
     Active Substance: OXALIPLATIN
     Dosage: UNK, Q2W (EVERY 2 WEEKS)
     Route: 065
     Dates: start: 202208, end: 202301
  3. OXALIPLATIN [Suspect]
     Active Substance: OXALIPLATIN
     Dosage: UNK, Q2W (EVERY 2 WEEKS)
     Route: 065
     Dates: start: 202209, end: 202211
  4. FLUOROURACIL [Suspect]
     Active Substance: FLUOROURACIL
     Indication: Ductal adenocarcinoma of pancreas
     Dosage: UNK, Q2W (EVERY 2 WEEKS)
     Route: 065
     Dates: start: 202206, end: 202212
  5. FLUOROURACIL [Suspect]
     Active Substance: FLUOROURACIL
     Dosage: UNK, Q2W (EVERY 2 WEEKS)
     Route: 065
     Dates: start: 202208, end: 202301
  6. FLUOROURACIL [Suspect]
     Active Substance: FLUOROURACIL
     Dosage: UNK, Q2W (EVERY 2 WEEKS)
     Route: 065
     Dates: start: 202209, end: 202211
  7. IRINOTECAN [Suspect]
     Active Substance: IRINOTECAN
     Indication: Ductal adenocarcinoma of pancreas
     Dosage: UNK, Q2W (EVERY 2 WEEKS)
     Route: 065
     Dates: start: 202206, end: 202212
  8. IRINOTECAN [Suspect]
     Active Substance: IRINOTECAN
     Dosage: UNK, Q2W (EVERY 2 WEEKS)
     Route: 065
     Dates: start: 202208, end: 202301
  9. IRINOTECAN [Suspect]
     Active Substance: IRINOTECAN
     Dosage: UNK, Q2W (EVERY 2 WEEKS)
     Route: 065
     Dates: start: 202209, end: 202211
  10. LEUCOVORIN [Suspect]
     Active Substance: LEUCOVORIN
     Indication: Product used for unknown indication
     Dosage: UNK, Q2W (EVERY 2 WEEKS)
     Route: 065

REACTIONS (3)
  - Ductal adenocarcinoma of pancreas [Unknown]
  - Malignant neoplasm progression [Unknown]
  - Product use in unapproved indication [Unknown]

NARRATIVE: CASE EVENT DATE: 20220601
